FAERS Safety Report 25239168 (Version 1)
Quarter: 2025Q2

REPORT INFORMATION
  Report Type: Other
  Country: CN (occurrence: CN)
  Receive Date: 20250425
  Receipt Date: 20250425
  Transmission Date: 20250716
  Serious: Yes (Hospitalization, Other)
  Sender: ESJAY PHARMA
  Company Number: CN-ESJAY PHARMA-000552

PATIENT
  Sex: Male

DRUGS (6)
  1. SELEGILINE [Suspect]
     Active Substance: SELEGILINE
     Indication: Parkinson^s disease
  2. LEVODOPA [Concomitant]
     Active Substance: LEVODOPA
     Indication: Parkinson^s disease
  3. ENTACAPONE [Concomitant]
     Active Substance: ENTACAPONE
     Indication: Parkinson^s disease
  4. paracetamol/dextromethorphan/chlorphenamine/pseudoephedrine [Concomitant]
     Indication: Rhinorrhoea
     Dates: start: 20231121
  5. paracetamol/dextromethorphan/chlorphenamine/pseudoephedrine [Concomitant]
     Indication: Cough
  6. paracetamol/dextromethorphan/chlorphenamine/pseudoephedrine [Concomitant]
     Indication: Myalgia

REACTIONS (2)
  - Serotonin syndrome [Recovering/Resolving]
  - Drug interaction [Unknown]
